FAERS Safety Report 25529042 (Version 1)
Quarter: 2025Q3

REPORT INFORMATION
  Report Type: Spontaneous
  Country: US (occurrence: US)
  Receive Date: 20250708
  Receipt Date: 20250708
  Transmission Date: 20251020
  Serious: Yes (Other)
  Sender: AMGEN
  Company Number: US-AMGEN-USASP2025131662

PATIENT

DRUGS (5)
  1. FILGRASTIM [Suspect]
     Active Substance: FILGRASTIM
     Indication: Acute myeloid leukaemia
     Route: 065
  2. CLADRIBINE [Suspect]
     Active Substance: CLADRIBINE
     Indication: Acute myeloid leukaemia
     Route: 065
  3. CYTARABINE [Suspect]
     Active Substance: CYTARABINE
     Indication: Acute myeloid leukaemia
     Route: 065
  4. MITOXANTRONE [Suspect]
     Active Substance: MITOXANTRONE HYDROCHLORIDE
     Indication: Acute myeloid leukaemia
     Route: 065
  5. MIDOSTAURIN [Concomitant]
     Active Substance: MIDOSTAURIN

REACTIONS (11)
  - Hepatotoxicity [Unknown]
  - Electrocardiogram QT prolonged [Unknown]
  - Haemorrhage [Unknown]
  - Arthralgia [Unknown]
  - Oedema [Unknown]
  - Diarrhoea [Unknown]
  - Electrolyte imbalance [Unknown]
  - Nausea [Unknown]
  - Rash [Unknown]
  - Therapy non-responder [Unknown]
  - Vomiting [Unknown]
